FAERS Safety Report 4864950-4 (Version None)
Quarter: 2005Q4

REPORT INFORMATION
  Report Type: 
  Country: None (occurrence: None)
  Receive Date: 20051219
  Receipt Date: 20051206
  Transmission Date: 20060501
  Serious: Yes (Other)
  Sender: FDA-Public Use
  Company Number: 23023

PATIENT
  Sex: 0

DRUGS (1)
  1. HALOPERIDOL DECANOATE [Suspect]
     Dosage: UNK
     Route: 065

REACTIONS (1)
  - INTERCEPTED MEDICATION ERROR [None]
